FAERS Safety Report 19496260 (Version 1)
Quarter: 2021Q3

REPORT INFORMATION
  Report Type: Spontaneous
  Country: US (occurrence: US)
  Receive Date: 20210702
  Receipt Date: 20210702
  Transmission Date: 20211014
  Serious: Yes (Disabling)
  Sender: FDA-Public Use
  Company Number: None

PATIENT
  Age: 43 Year
  Sex: Female
  Weight: 58.5 kg

DRUGS (1)
  1. SHEFFIELD PAIN RELIEF [Suspect]
     Active Substance: BENZOCAINE
     Indication: TOOTHACHE
     Route: 061
     Dates: start: 20210630, end: 20210702

REACTIONS (3)
  - Tooth injury [None]
  - Gingival disorder [None]
  - Oral pain [None]

NARRATIVE: CASE EVENT DATE: 20210630
